FAERS Safety Report 14132674 (Version 1)
Quarter: 2017Q4

REPORT INFORMATION
  Report Type: Spontaneous
  Country: US (occurrence: US)
  Receive Date: 20171027
  Receipt Date: 20171027
  Transmission Date: 20180321
  Serious: No
  Sender: FDA-Public Use
  Company Number: US-ORCHID HEALTHCARE-2031647

PATIENT
  Age: 68 Year
  Sex: Female
  Weight: 60 kg

DRUGS (1)
  1. MODAFINIL. [Suspect]
     Active Substance: MODAFINIL
     Indication: DISTURBANCE IN ATTENTION
     Route: 065

REACTIONS (4)
  - Drug ineffective [Unknown]
  - Glossodynia [Unknown]
  - Unevaluable event [Unknown]
  - Hypersensitivity [Unknown]
